FAERS Safety Report 12679708 (Version 1)
Quarter: 2016Q3

REPORT INFORMATION
  Report Type: Spontaneous
  Country: US (occurrence: None)
  Receive Date: 20160823
  Receipt Date: 20160823
  Transmission Date: 20161109
  Serious: Yes (Hospitalization)
  Sender: FDA-Public Use
  Company Number: None

PATIENT
  Age: 44 Year
  Sex: Female
  Weight: 63.5 kg

DRUGS (2)
  1. ONDANSETRON ODT [Suspect]
     Active Substance: ONDANSETRON
     Indication: NAUSEA
     Route: 048
     Dates: start: 20160819, end: 20160822
  2. ONDANSETRON ODT [Suspect]
     Active Substance: ONDANSETRON
     Indication: VOMITING
     Route: 048
     Dates: start: 20160819, end: 20160822

REACTIONS (7)
  - Pregnancy [None]
  - Dehydration [None]
  - Therapy non-responder [None]
  - Extrapyramidal disorder [None]
  - Exposure during pregnancy [None]
  - Muscle spasms [None]
  - Hypokalaemia [None]

NARRATIVE: CASE EVENT DATE: 20160822
